FAERS Safety Report 12129182 (Version 2)
Quarter: 2016Q1

REPORT INFORMATION
  Report Type: Report from Study
  Country: US (occurrence: US)
  Receive Date: 20160229
  Receipt Date: 20160315
  Transmission Date: 20160526
  Serious: No
  Sender: FDA-Public Use
  Company Number: US-AMGEN-USASL2016021475

PATIENT
  Age: 66 Year
  Sex: Female

DRUGS (2)
  1. ENBREL [Suspect]
     Active Substance: ETANERCEPT
     Dosage: UNK
     Route: 065
  2. ENBREL [Suspect]
     Active Substance: ETANERCEPT
     Indication: RHEUMATOID ARTHRITIS
     Dosage: 50 MG, QWK
     Route: 065
     Dates: start: 20150731

REACTIONS (7)
  - Insomnia [Unknown]
  - Nasopharyngitis [Unknown]
  - Dental caries [Unknown]
  - Amnesia [Unknown]
  - Poor quality sleep [Unknown]
  - Tooth disorder [Unknown]
  - Cystitis interstitial [Unknown]

NARRATIVE: CASE EVENT DATE: 20160229
